FAERS Safety Report 9812244 (Version 2)
Quarter: 2014Q1

REPORT INFORMATION
  Report Type: Report from Study
  Country: US (occurrence: US)
  Receive Date: 20140113
  Receipt Date: 20140113
  Transmission Date: 20141002
  Serious: Yes (Other)
  Sender: FDA-Public Use
  Company Number: US-ROCHE-1187975

PATIENT
  Age: 13 Year
  Sex: Male
  Weight: 39.19 kg

DRUGS (3)
  1. NUTROPIN AQ [Suspect]
     Indication: GROWTH HORMONE DEFICIENCY
     Dosage: NUSPIN 10, 10 MG/2ML CARTRIDGE
     Route: 058
     Dates: start: 20130128
  2. NUTROPIN AQ [Suspect]
     Route: 058
     Dates: end: 20131104
  3. NUTROPIN AQ [Suspect]
     Route: 058
     Dates: start: 20131104

REACTIONS (5)
  - Hypoglycaemia [Unknown]
  - Drug dose omission [Unknown]
  - Migraine [Unknown]
  - Pain [Unknown]
  - Weight increased [Unknown]
